FAERS Safety Report 21649371 (Version 1)
Quarter: 2022Q4

REPORT INFORMATION
  Report Type: Report from Study
  Country: CA (occurrence: CA)
  Receive Date: 20221128
  Receipt Date: 20221128
  Transmission Date: 20230113
  Serious: Yes (Other)
  Sender: FDA-Public Use
  Company Number: CA-LEO Pharma-347126

PATIENT
  Age: 62 Year
  Sex: Female

DRUGS (13)
  1. VITAMIN B12 [Concomitant]
     Active Substance: CYANOCOBALAMIN
     Indication: Product used for unknown indication
     Dosage: DOSAGE : ASKED BUT UNKNOWN?REASON LOT NO UNKNOWN : NOT REQUIRED- NON-LEO PRODUCT?GIVEN DURATION : ?S
  2. HYDROCORTISONE VALERATE [Concomitant]
     Active Substance: HYDROCORTISONE VALERATE
     Indication: Product used for unknown indication
     Dosage: DOSAGE : ASKED BUT UNKNOWN?REASON LOT NO UNKNOWN : NOT REQUIRED- NON-LEO PRODUCT?GIVEN DURATION : ?S
  3. DEVICE [Suspect]
     Active Substance: DEVICE
     Indication: Dermatitis atopic
  4. TRALOKINUMAB [Suspect]
     Active Substance: TRALOKINUMAB
     Indication: Dermatitis atopic
     Dosage: DOSAGE : LOADING DOSE: 600MG AND THEN 300MG Q2WEEKS?FORMAT: PREFILLED SYRINGES 150 MG/ML
     Route: 058
     Dates: start: 20220706
  5. TRALOKINUMAB [Suspect]
     Active Substance: TRALOKINUMAB
     Indication: Dermatitis atopic
     Dosage: DOSAGE : LOADING DOSE: 600MG AND THEN 300MG Q2WEEKS?FORMAT: PREFILLED SYRINGES 150 MG/ML
     Route: 058
     Dates: start: 20220706
  6. TRALOKINUMAB [Suspect]
     Active Substance: TRALOKINUMAB
     Indication: Dermatitis atopic
  7. TRALOKINUMAB [Suspect]
     Active Substance: TRALOKINUMAB
     Indication: Dermatitis atopic
  8. TRALOKINUMAB [Suspect]
     Active Substance: TRALOKINUMAB
     Indication: Dermatitis atopic
     Dosage: DOSAGE : LOADING DOSE: 600MG AND THEN 300MG Q2WEEKS?FORMAT: PREFILLED SYRINGES 150 MG/ML
     Route: 058
     Dates: start: 20220706
  9. TRALOKINUMAB [Suspect]
     Active Substance: TRALOKINUMAB
     Indication: Dermatitis atopic
     Dosage: DOSAGE : LOADING DOSE: 600MG AND THEN 300MG Q2WEEKS?FORMAT: PREFILLED SYRINGES 150 MG/ML
     Route: 058
     Dates: start: 20220706
  10. TRALOKINUMAB [Suspect]
     Active Substance: TRALOKINUMAB
     Indication: Dermatitis atopic
  11. TRALOKINUMAB [Suspect]
     Active Substance: TRALOKINUMAB
     Indication: Dermatitis atopic
  12. IRON [Concomitant]
     Active Substance: IRON
     Indication: Product used for unknown indication
     Dosage: DOSAGE : ASKED BUT UNKNOWN?PILLS?REASON LOT NO UNKNOWN : NOT REQUIRED- NON-LEO PRODUCT?GIVEN DURATIO
  13. EFFEXOR [Concomitant]
     Active Substance: VENLAFAXINE HYDROCHLORIDE
     Indication: Product used for unknown indication
     Dosage: DOSAGE : ASKED BUT UNKNOWN?REASON LOT NO UNKNOWN : NOT REQUIRED- NON-LEO PRODUCT?GIVEN DURATION : ?S

REACTIONS (1)
  - Facial paralysis [Unknown]
